FAERS Safety Report 12802731 (Version 1)
Quarter: 2016Q4

REPORT INFORMATION
  Report Type: Spontaneous
  Country: US (occurrence: US)
  Receive Date: 20161001
  Receipt Date: 20161001
  Transmission Date: 20170207
  Serious: Yes (Other)
  Sender: FDA-Public Use
  Company Number: None

PATIENT
  Age: 57 Year
  Sex: Female
  Weight: 46.8 kg

DRUGS (19)
  1. CRESTOR [Concomitant]
     Active Substance: ROSUVASTATIN CALCIUM
  2. FOLIC ACID. [Concomitant]
     Active Substance: FOLIC ACID
  3. ERGOCALCIFEROL (VITAMIN D2) [Concomitant]
  4. METHOTREXATE. [Concomitant]
     Active Substance: METHOTREXATE
  5. OXYCODONE [Concomitant]
     Active Substance: OXYCODONE
  6. VITAMIN B12 [Concomitant]
     Active Substance: CYANOCOBALAMIN
  7. FLUDROCORTISONE [Concomitant]
     Active Substance: FLUDROCORTISONE
  8. TRIAMCINOLONE 0.1% CREAM [Concomitant]
  9. URSODIOL. [Concomitant]
     Active Substance: URSODIOL
  10. CHLORHEXIDINE [Concomitant]
     Active Substance: CHLORHEXIDINE
  11. LETROZOLE. [Concomitant]
     Active Substance: LETROZOLE
  12. PROLIA [Concomitant]
     Active Substance: DENOSUMAB
  13. OCALIVA [Suspect]
     Active Substance: OBETICHOLIC ACID
     Indication: BILIARY CIRRHOSIS PRIMARY
     Dosage: ?          QUANTITY:30 TABLET(S);?
     Route: 048
     Dates: start: 20160829
  14. PANTOPRAZOLE [Concomitant]
     Active Substance: PANTOPRAZOLE SODIUM
  15. HYDROXYCHLOROQUINE [Concomitant]
     Active Substance: HYDROXYCHLOROQUINE
  16. PANCRELIPASE. [Concomitant]
     Active Substance: PANCRELIPASE
  17. PREDNISONE. [Concomitant]
     Active Substance: PREDNISONE
  18. INSULIN LISPRO [Concomitant]
     Active Substance: INSULIN LISPRO
  19. EZETIMIBE (ZETIA) [Concomitant]

REACTIONS (2)
  - Hypoglycaemia [None]
  - Hyperglycaemia [None]

NARRATIVE: CASE EVENT DATE: 20160902
